FAERS Safety Report 8011265-1 (Version None)
Quarter: 2011Q4

REPORT INFORMATION
  Report Type: 
  Country: None (occurrence: None)
  Receive Date: 20111227
  Receipt Date: 20111227
  Transmission Date: 20120403
  Serious: Yes (Other)
  Sender: FDA-Public Use
  Company Number: None

PATIENT
  Age: 41 Year
  Sex: Female
  Weight: 62.142 kg

DRUGS (1)
  1. MEFLOQUINE HYDROCHLORIDE [Suspect]
     Indication: PROPHYLAXIS
     Dosage: 250MG
     Route: 002
     Dates: start: 20091029, end: 20100111

REACTIONS (11)
  - OBSESSIVE THOUGHTS [None]
  - IRRITABILITY [None]
  - TACHYCARDIA [None]
  - ASTHENIA [None]
  - PANIC ATTACK [None]
  - DIZZINESS [None]
  - MAJOR DEPRESSION [None]
  - ABNORMAL DREAMS [None]
  - ANXIETY DISORDER [None]
  - COMPULSIONS [None]
  - NIGHTMARE [None]
